FAERS Safety Report 7809565-0 (Version None)
Quarter: 2011Q4

REPORT INFORMATION
  Report Type: 
  Country: None (occurrence: None)
  Receive Date: 20111012
  Receipt Date: 20111007
  Transmission Date: 20120403
  Serious: Yes (Hospitalization)
  Sender: FDA-Public Use
  Company Number: PHEH2011US06281

PATIENT
  Sex: Female
  Weight: 66.667 kg

DRUGS (1)
  1. EXJADE [Suspect]
     Indication: HAEMOCHROMATOSIS
     Dosage: 125 MG, DAILY
     Route: 048
     Dates: start: 20080915

REACTIONS (1)
  - HERNIA [None]
